FAERS Safety Report 5006256-9 (Version None)
Quarter: 2006Q2

REPORT INFORMATION
  Report Type: 
  Country: None (occurrence: None)
  Receive Date: 20060515
  Receipt Date: 20060426
  Transmission Date: 20061013
  Serious: Yes (Other)
  Sender: FDA-Public Use
  Company Number: TRP_0677_2005

PATIENT
  Age: 47 Year
  Sex: Male
  Weight: 81.6475 kg

DRUGS (10)
  1. RIBASPHERE [Suspect]
     Indication: HEPATITIS C
     Dosage: DF PO
     Route: 048
     Dates: start: 20050722, end: 20051231
  2. PEG-INTRON [Suspect]
     Indication: HEPATITIS C
     Dosage: DF SC
     Route: 058
     Dates: start: 20050722, end: 20051230
  3. ADVAIR DISKUS 100/50 [Concomitant]
  4. ALBUTEROL SULATE [Concomitant]
  5. DILAUDID [Concomitant]
  6. EFFEXOR [Concomitant]
  7. THEOPHYLLINE [Concomitant]
  8. XANAX [Concomitant]
  9. LEXAPRO [Concomitant]
  10. ADVAIR DISKUS 100/50 [Concomitant]

REACTIONS (11)
  - ASTHENIA [None]
  - DEHYDRATION [None]
  - DEPRESSION [None]
  - DIVORCED [None]
  - DRUG ABUSER [None]
  - DRUG DEPENDENCE [None]
  - ECONOMIC PROBLEM [None]
  - INSOMNIA [None]
  - MUSCULAR WEAKNESS [None]
  - ORAL INTAKE REDUCED [None]
  - WEIGHT FLUCTUATION [None]
